FAERS Safety Report 18263329 (Version 1)
Quarter: 2020Q3

REPORT INFORMATION
  Report Type: Not Available
  Country: US (occurrence: US)
  Receive Date: 20200914
  Receipt Date: 20200914
  Transmission Date: 20201103
  Serious: No
  Sender: FDA-Public Use
  Company Number: US-NEUROCRINE BIOSCIENCES INC.-2020NBI03269

PATIENT
  Age: 54 Year
  Sex: Female

DRUGS (14)
  1. CETIRIZINE [Concomitant]
     Active Substance: CETIRIZINE HYDROCHLORIDE
     Route: 048
  2. PREGABALIN. [Concomitant]
     Active Substance: PREGABALIN
     Route: 048
  3. HYDROXYZINE [Concomitant]
     Active Substance: HYDROXYZINE HYDROCHLORIDE
     Route: 048
  4. VITAMIN D3 [Concomitant]
     Active Substance: CHOLECALCIFEROL
  5. MIRTAZAPINE. [Concomitant]
     Active Substance: MIRTAZAPINE
     Route: 048
  6. TRAMADOL. [Concomitant]
     Active Substance: TRAMADOL
     Route: 048
  7. INGREZZA [Suspect]
     Active Substance: VALBENAZINE
     Indication: TARDIVE DYSKINESIA
     Route: 048
     Dates: start: 20200826, end: 20200829
  8. METOPROLOL. [Concomitant]
     Active Substance: METOPROLOL
     Route: 048
  9. ALBUTEROL INHALER [Concomitant]
     Active Substance: ALBUTEROL
  10. RISPERIDONE. [Concomitant]
     Active Substance: RISPERIDONE
  11. XARELTO [Concomitant]
     Active Substance: RIVAROXABAN
  12. LOSARTAN. [Concomitant]
     Active Substance: LOSARTAN
     Route: 048
  13. TIZANIDINE. [Concomitant]
     Active Substance: TIZANIDINE
     Route: 048
  14. ACETAMINOPHEN. [Concomitant]
     Active Substance: ACETAMINOPHEN
     Route: 048

REACTIONS (2)
  - Nausea [Recovered/Resolved]
  - Restlessness [Recovered/Resolved]

NARRATIVE: CASE EVENT DATE: 20200826
